FAERS Safety Report 4401483-3 (Version None)
Quarter: 2004Q3

REPORT INFORMATION
  Report Type: 
  Country: None (occurrence: None)
  Receive Date: 20040907
  Receipt Date: 20040526
  Transmission Date: 20050211
  Serious: No
  Sender: FDA-Public Use
  Company Number: US-BRISTOL-MYERS SQUIBB COMPANY-12597621

PATIENT

DRUGS (1)
  1. COUMADIN [Suspect]
     Dosage: DOSE WAS INCREASED TO 6 MILLIGRAMS ON AN UNSPECIFIED DATE.
     Dates: start: 20040324

REACTIONS (1)
  - OEDEMA PERIPHERAL [None]
